FAERS Safety Report 10606728 (Version 1)
Quarter: 2014Q4

REPORT INFORMATION
  Report Type: Spontaneous
  Country: US (occurrence: None)
  Receive Date: 20141124
  Receipt Date: 20141124
  Transmission Date: 20150529
  Serious: Yes (Other)
  Sender: FDA-Public Use
  Company Number: None

PATIENT
  Age: 48 Year
  Sex: Female
  Weight: 84.37 kg

DRUGS (2)
  1. XANAX [Concomitant]
     Active Substance: ALPRAZOLAM
  2. ALPRAZOLAM. [Suspect]
     Active Substance: ALPRAZOLAM
     Indication: PANIC DISORDER
     Dosage: 1 MILLIGRAM TABLET ?1/2 TABLET?TWICE DAILY?BY MOUTH
     Route: 048
     Dates: start: 20141109, end: 20141117

REACTIONS (8)
  - Epistaxis [None]
  - Fatigue [None]
  - Influenza like illness [None]
  - Panic attack [None]
  - Palpitations [None]
  - Headache [None]
  - Feeling jittery [None]
  - Feeling abnormal [None]

NARRATIVE: CASE EVENT DATE: 20141109
